FAERS Safety Report 17972232 (Version 1)
Quarter: 2020Q3

REPORT INFORMATION
  Report Type: Spontaneous
  Country: PL (occurrence: PL)
  Receive Date: 20200702
  Receipt Date: 20200702
  Transmission Date: 20201103
  Serious: Yes (Death, Other)
  Sender: FDA-Public Use
  Company Number: PL-BAXTER-2020BAX013616

PATIENT
  Age: 49 Year
  Sex: Male

DRUGS (15)
  1. ENDOXAN [Suspect]
     Active Substance: CYCLOPHOSPHAMIDE
     Indication: B-CELL LYMPHOMA
     Route: 065
     Dates: start: 201607, end: 201611
  2. CISPLATIN. [Suspect]
     Active Substance: CISPLATIN
     Route: 065
     Dates: start: 201805, end: 201807
  3. GEMCITABINE. [Suspect]
     Active Substance: GEMCITABINE
     Indication: B-CELL LYMPHOMA
     Route: 065
     Dates: start: 201805, end: 201807
  4. DOXIL [Suspect]
     Active Substance: DOXORUBICIN HYDROCHLORIDE
     Indication: B-CELL LYMPHOMA
     Route: 065
     Dates: start: 201607, end: 201611
  5. CYTARABINE. [Suspect]
     Active Substance: CYTARABINE
     Route: 041
     Dates: start: 201805, end: 201807
  6. RITUXIMAB. [Suspect]
     Active Substance: RITUXIMAB
     Dosage: INFUSION, SOLUTION
     Route: 041
     Dates: start: 201805, end: 201807
  7. CYTARABINE. [Suspect]
     Active Substance: CYTARABINE
     Indication: B-CELL LYMPHOMA
     Route: 065
     Dates: start: 201711, end: 201802
  8. CYTARABINE. [Suspect]
     Active Substance: CYTARABINE
     Route: 041
     Dates: start: 201607, end: 201611
  9. RITUXIMAB. [Suspect]
     Active Substance: RITUXIMAB
     Indication: B-CELL LYMPHOMA
     Dosage: INFUSION, SOLUTION
     Route: 041
     Dates: start: 201711, end: 201802
  10. PREDNISOLONE. [Suspect]
     Active Substance: PREDNISOLONE
     Indication: B-CELL LYMPHOMA
     Route: 065
     Dates: start: 201607, end: 201611
  11. CISPLATIN. [Suspect]
     Active Substance: CISPLATIN
     Indication: B-CELL LYMPHOMA
     Route: 065
     Dates: start: 201711, end: 201802
  12. VINCRISTINE [Suspect]
     Active Substance: VINCRISTINE
     Indication: B-CELL LYMPHOMA
     Route: 065
     Dates: start: 201607, end: 201611
  13. RITUXIMAB. [Suspect]
     Active Substance: RITUXIMAB
     Dosage: INFUSION, SOLUTION
     Route: 041
     Dates: start: 201607, end: 201611
  14. DEXAMETHASONE. [Suspect]
     Active Substance: DEXAMETHASONE
     Indication: B-CELL LYMPHOMA
     Route: 065
     Dates: start: 201711, end: 201802
  15. DEXAMETHASONE. [Suspect]
     Active Substance: DEXAMETHASONE
     Route: 065
     Dates: start: 201805, end: 201807

REACTIONS (3)
  - Disease progression [Unknown]
  - B-cell lymphoma refractory [Fatal]
  - Infection [Fatal]
